FAERS Safety Report 5036331-4 (Version None)
Quarter: 2006Q2

REPORT INFORMATION
  Report Type: 
  Country: None (occurrence: None)
  Receive Date: 20060601
  Receipt Date: 20060303
  Transmission Date: 20061013
  Serious: Yes (Hospitalization)
  Sender: FDA-Public Use
  Company Number: US200603001936

PATIENT
  Age: 62 Year
  Sex: Male

DRUGS (1)
  1. CYMBALTA [Suspect]
     Indication: NEUROPATHY
     Dosage: 60 MG, 2/D; 60 MEQ, 2/D

REACTIONS (2)
  - ORGASM ABNORMAL [None]
  - URINARY RETENTION [None]
